FAERS Safety Report 9919984 (Version 1)
Quarter: 2014Q1

REPORT INFORMATION
  Report Type: Report from Study
  Country: US (occurrence: US)
  Receive Date: 20140224
  Receipt Date: 20140224
  Transmission Date: 20141002
  Serious: Yes (Other)
  Sender: FDA-Public Use
  Company Number: US-ABBVIE-14P-163-1203659-00

PATIENT
  Age: 48 Year
  Sex: Male

DRUGS (11)
  1. HUMIRA [Suspect]
     Indication: ANKYLOSING SPONDYLITIS
     Route: 058
     Dates: start: 20131127, end: 20140131
  2. TOPROL [Concomitant]
     Indication: HYPERTENSION
     Route: 048
  3. MOBIC [Concomitant]
     Indication: ANKYLOSING SPONDYLITIS
     Route: 048
  4. LYRICA [Concomitant]
     Indication: NEUROPATHY PERIPHERAL
     Route: 048
  5. LYRICA [Concomitant]
     Indication: ANKYLOSING SPONDYLITIS
  6. PRILOSEC [Concomitant]
     Indication: GASTROOESOPHAGEAL REFLUX DISEASE
     Route: 048
  7. PRILOSEC [Concomitant]
     Indication: PROPHYLAXIS
  8. NIACIN [Concomitant]
     Indication: PRODUCT USED FOR UNKNOWN INDICATION
     Route: 048
  9. FISH OIL [Concomitant]
     Indication: PRODUCT USED FOR UNKNOWN INDICATION
     Route: 048
  10. NORCO [Concomitant]
     Indication: PAIN
     Dosage: 5/325
  11. NORCO [Concomitant]
     Indication: ANKYLOSING SPONDYLITIS

REACTIONS (6)
  - Erythema [Recovered/Resolved]
  - Inflammation [Recovered/Resolved]
  - Pyrexia [Recovered/Resolved]
  - Cellulitis [Not Recovered/Not Resolved]
  - Staphylococcal infection [Not Recovered/Not Resolved]
  - Upper extremity mass [Not Recovered/Not Resolved]
